FAERS Safety Report 7876430-2 (Version None)
Quarter: 2011Q4

REPORT INFORMATION
  Report Type: 
  Country: None (occurrence: None)
  Receive Date: 20111031
  Receipt Date: 20111024
  Transmission Date: 20120403
  Serious: Yes (Other)
  Sender: FDA-Public Use
  Company Number: PHHY2011DE27313

PATIENT
  Sex: Female

DRUGS (2)
  1. EXTAVIA [Suspect]
     Dosage: 1 ML, QOD
     Route: 058
     Dates: end: 20110704
  2. EXTAVIA [Suspect]
     Indication: MULTIPLE SCLEROSIS
     Dosage: 250 UG, QOD
     Route: 058
     Dates: start: 20110110

REACTIONS (8)
  - LACERATION [None]
  - HYPOKINESIA [None]
  - CONTUSION [None]
  - OEDEMA PERIPHERAL [None]
  - PAIN [None]
  - FINGER DEFORMITY [None]
  - FALL [None]
  - HAND FRACTURE [None]
